FAERS Safety Report 8077213-3 (Version None)
Quarter: 2012Q1

REPORT INFORMATION
  Report Type: 
  Country: None (occurrence: None)
  Receive Date: 20120127
  Receipt Date: 20120124
  Transmission Date: 20120608
  Serious: Yes (Hospitalization)
  Sender: FDA-Public Use
  Company Number: SA-ABBOTT-12P-259-0897222-00

PATIENT
  Age: 32 Year
  Sex: Female

DRUGS (14)
  1. ADALIMUMAB [Suspect]
     Indication: RHEUMATOID ARTHRITIS
     Route: 058
     Dates: end: 20091201
  2. NAPROXEN [Concomitant]
     Indication: PAIN
  3. ACETAMINOPHEN [Concomitant]
     Indication: PAIN
  4. PREDNISOLONE [Concomitant]
     Dosage: 60 MG DAILY
  5. METHOTREXATE [Concomitant]
     Dosage: TAPER DOWN TO 7.5 MG/WEEK
     Dates: start: 20091201
  6. NAPROXEN [Concomitant]
     Indication: PYREXIA
  7. METHOTREXATE [Concomitant]
     Dosage: 15 MG/WEEK
     Dates: end: 20091201
  8. ACETAMINOPHEN [Concomitant]
     Indication: PYREXIA
  9. ANTIBIOTICS [Concomitant]
     Indication: PHARYNGITIS
     Route: 048
  10. ADALIMUMAB [Suspect]
     Route: 058
     Dates: start: 20091201
  11. METHOTREXATE [Concomitant]
     Indication: RHEUMATOID ARTHRITIS
     Dosage: 10 MG/WEEK
  12. HYDROXYCHLOROQUINE SULFATE [Concomitant]
     Indication: PRODUCT USED FOR UNKNOWN INDICATION
  13. PREDNISOLONE [Concomitant]
     Dosage: TAPERING
  14. PREDNISOLONE [Concomitant]
     Indication: PRODUCT USED FOR UNKNOWN INDICATION

REACTIONS (3)
  - SYSTEMIC LUPUS ERYTHEMATOSUS [None]
  - MUSCULAR WEAKNESS [None]
  - MYOSITIS [None]
